FAERS Safety Report 8190801-9 (Version None)
Quarter: 2012Q1

REPORT INFORMATION
  Report Type: 
  Country: None (occurrence: None)
  Receive Date: 20120307
  Receipt Date: 20120229
  Transmission Date: 20120608
  Serious: Yes (Other)
  Sender: FDA-Public Use
  Company Number: RU-TEVA-325834USA

PATIENT
  Age: 60 Year
  Sex: Female

DRUGS (2)
  1. BENDAMUSTINE [Suspect]
     Indication: MULTIPLE MYELOMA
     Route: 042
     Dates: start: 20110101
  2. ZOLEDRONIC ACID [Concomitant]
     Indication: MULTIPLE MYELOMA

REACTIONS (3)
  - RASH [None]
  - LARYNGEAL OEDEMA [None]
  - THROAT IRRITATION [None]
